FAERS Safety Report 5689863-X (Version None)
Quarter: 2008Q1

REPORT INFORMATION
  Report Type: 
  Country: None (occurrence: None)
  Receive Date: 20080331
  Receipt Date: 20080331
  Transmission Date: 20080703
  Serious: Yes (Hospitalization)
  Sender: FDA-Public Use
  Company Number: None

PATIENT
  Sex: Female
  Weight: 59 kg

DRUGS (4)
  1. CISPLATIN [Suspect]
     Dosage: 80 MG
  2. DOXORUBICIN HYDROCHLORIDE [Suspect]
     Dosage: 48 MG
  3. TAXOL [Suspect]
     Dosage: 200 MG
  4. NEULASTA [Suspect]
     Dosage: 6 MG

REACTIONS (11)
  - ANOREXIA [None]
  - ASTHENIA [None]
  - BLOOD CULTURE POSITIVE [None]
  - BLOOD POTASSIUM DECREASED [None]
  - MENTAL STATUS CHANGES [None]
  - NEUTROPENIC SEPSIS [None]
  - NEUTROPHIL COUNT DECREASED [None]
  - PLATELET COUNT DECREASED [None]
  - RENAL FAILURE [None]
  - STAPHYLOCOCCAL INFECTION [None]
  - WHITE BLOOD CELL COUNT DECREASED [None]
